FAERS Safety Report 15468012 (Version 1)
Quarter: 2018Q4

REPORT INFORMATION
  Report Type: Spontaneous
  Country: NL (occurrence: NL)
  Receive Date: 20181005
  Receipt Date: 20181005
  Transmission Date: 20190204
  Serious: Yes (Life-Threatening, Hospitalization)
  Sender: FDA-Public Use
  Company Number: NL-TEVA-2018-NL-959512

PATIENT
  Sex: Male
  Weight: 3.7 kg

DRUGS (4)
  1. FLUOXETINE TABLET, 20 MG (MILLIGRAM) [Suspect]
     Active Substance: FLUOXETINE HYDROCHLORIDE
     Indication: ANXIETY DISORDER
     Dosage: 20 MILLIGRAM DAILY;
     Route: 065
  2. QUETIAPINE FILMOMHULDE TABLET, 100 MG (MILLIGRAM) [Suspect]
     Active Substance: QUETIAPINE
     Indication: POST-TRAUMATIC STRESS DISORDER
     Dosage: 100 MILLIGRAM DAILY;
     Route: 065
  3. FLUOXETINE TABLET, 20 MG (MILLIGRAM) [Suspect]
     Active Substance: FLUOXETINE HYDROCHLORIDE
     Indication: POST-TRAUMATIC STRESS DISORDER
  4. FLUOXETINE TABLET, 20 MG (MILLIGRAM) [Suspect]
     Active Substance: FLUOXETINE HYDROCHLORIDE
     Indication: DEPRESSIVE SYMPTOM

REACTIONS (2)
  - Persistent foetal circulation [Recovered/Resolved]
  - Maternal exposure during pregnancy [Unknown]
